FAERS Safety Report 8861207 (Version 2)
Quarter: 2012Q4

REPORT INFORMATION
  Report Type: 
  Country: PT (occurrence: PT)
  Receive Date: 20121026
  Receipt Date: 20121108
  Transmission Date: 20130627
  Serious: Yes (Hospitalization)
  Sender: FDA-Public Use
  Company Number: PT-009507513-1210PRT009310

PATIENT
  Age: 31 Year
  Sex: Female

DRUGS (2)
  1. NUVARING [Suspect]
     Indication: CONTRACEPTION
     Dosage: UNK
     Dates: start: 201204
  2. AMOXICILLIN (+) CLAVULANIC ACID [Concomitant]
     Indication: RESPIRATORY DISORDER
     Dosage: UNK
     Dates: start: 201208

REACTIONS (3)
  - Abortion spontaneous [Recovered/Resolved]
  - Respiratory disorder [Unknown]
  - Unintended pregnancy [Recovered/Resolved]
